FAERS Safety Report 11570188 (Version 3)
Quarter: 2015Q4

REPORT INFORMATION
  Report Type: Spontaneous
  Country: US (occurrence: IT)
  Receive Date: 20150929
  Receipt Date: 20151116
  Transmission Date: 20160304
  Serious: Yes (Hospitalization)
  Sender: FDA-Public Use
  Company Number: IT-FRI-1000079664

PATIENT
  Age: 40 Year
  Sex: Female
  Weight: 82 kg

DRUGS (3)
  1. ASENAPINE [Suspect]
     Active Substance: ASENAPINE
     Indication: BIPOLAR I DISORDER
     Dosage: 10 MG
     Route: 048
     Dates: start: 20120326, end: 20150907
  2. ASENAPINE [Suspect]
     Active Substance: ASENAPINE
     Dosage: 15 MG/DAY (10MG + 5 MG =1 TAB + 1/2 TAB)
     Route: 048
     Dates: start: 20150910, end: 20150910
  3. ASENAPINE [Suspect]
     Active Substance: ASENAPINE
     Dosage: 20 MG/DAY (10 MG + 10 MG)
     Route: 048
     Dates: start: 20150911, end: 201509

REACTIONS (6)
  - Agitation [Recovered/Resolved]
  - Dyspnoea [Recovered/Resolved]
  - Dysarthria [Recovered/Resolved]
  - Muscle twitching [Recovered/Resolved]
  - Trismus [Recovered/Resolved]
  - Off label use [Recovered/Resolved]

NARRATIVE: CASE EVENT DATE: 2012
